FAERS Safety Report 15279748 (Version 1)
Quarter: 2018Q3

REPORT INFORMATION
  Report Type: Spontaneous
  Country: US (occurrence: US)
  Receive Date: 20180815
  Receipt Date: 20180815
  Transmission Date: 20181010
  Serious: Yes (Death, Life-Threatening, Other)
  Sender: FDA-Public Use
  Company Number: US-BRACCO-2018US04121

PATIENT
  Age: 66 Year
  Sex: Male

DRUGS (2)
  1. ISOVUE 370 [Suspect]
     Active Substance: IOPAMIDOL
     Indication: ANGIOGRAM
     Dosage: 30 ML, SINGLE
     Route: 042
     Dates: start: 20180518, end: 20180518
  2. ISOVUE 370 [Suspect]
     Active Substance: IOPAMIDOL
     Indication: ANGIOGRAM
     Dosage: 10 ML, SINGLE
     Route: 042
     Dates: start: 20180518, end: 20180518

REACTIONS (5)
  - Swelling [Unknown]
  - Systemic inflammatory response syndrome [Unknown]
  - Laryngeal oedema [Unknown]
  - Extravasation [Unknown]
  - Haemoglobin decreased [Unknown]

NARRATIVE: CASE EVENT DATE: 20180518
